FAERS Safety Report 22265268 (Version 1)
Quarter: 2023Q2

REPORT INFORMATION
  Report Type: Spontaneous
  Country: US (occurrence: US)
  Receive Date: 20230428
  Receipt Date: 20230428
  Transmission Date: 20230721
  Serious: Yes (Other)
  Sender: FDA-Public Use
  Company Number: US-PPDUS-2023ST000583

PATIENT
  Age: 60 Year
  Sex: Female

DRUGS (1)
  1. ORSERDU [Suspect]
     Active Substance: ELACESTRANT
     Indication: Product used for unknown indication
     Route: 048

REACTIONS (3)
  - Nasal congestion [Recovered/Resolved]
  - Rash maculo-papular [Recovered/Resolved]
  - Urticaria [Recovered/Resolved]
